FAERS Safety Report 6803741-1 (Version None)
Quarter: 2010Q2

REPORT INFORMATION
  Report Type: 
  Country: None (occurrence: None)
  Receive Date: 20100628
  Receipt Date: 20100520
  Transmission Date: 20101027
  Serious: Yes (Other)
  Sender: FDA-Public Use
  Company Number: BB-WYE-H15867310

PATIENT
  Sex: Female
  Weight: 19.5 kg

DRUGS (1)
  1. CHILDREN'S ADVIL [Suspect]
     Indication: PAIN
     Dosage: 5 ML  DOSE
     Route: 048
     Dates: start: 20100512

REACTIONS (2)
  - ANGIOEDEMA [None]
  - EYE SWELLING [None]
